FAERS Safety Report 17679507 (Version 2)
Quarter: 2020Q2

REPORT INFORMATION
  Report Type: Report from Study
  Country: US (occurrence: US)
  Receive Date: 20200417
  Receipt Date: 20200521
  Transmission Date: 20200714
  Serious: Yes (Other)
  Sender: FDA-Public Use
  Company Number: US-MYLANLABS-2020M1036813

PATIENT
  Sex: Female
  Weight: 132 kg

DRUGS (1)
  1. GLATIRAMER ACETATE INJECTION [Suspect]
     Active Substance: GLATIRAMER ACETATE
     Indication: RELAPSING MULTIPLE SCLEROSIS
     Dosage: 40MG SQ 3 TIMES/WEEK
     Route: 058

REACTIONS (4)
  - Pruritus [Unknown]
  - Incorrect dose administered [Unknown]
  - Palpitations [Unknown]
  - Multiple sclerosis relapse [Unknown]
